FAERS Safety Report 4881996-0 (Version None)
Quarter: 2006Q1

REPORT INFORMATION
  Report Type: 
  Country: None (occurrence: None)
  Receive Date: 20060113
  Receipt Date: 20060113
  Transmission Date: 20060701
  Serious: Yes (Hospitalization)
  Sender: FDA-Public Use
  Company Number: None

PATIENT
  Age: 56 Year
  Sex: Male
  Weight: 97.9 kg

DRUGS (13)
  1. CYTOXAN [Suspect]
     Indication: CHEMOTHERAPY
     Dosage: 4600 MG /IOV
     Dates: start: 20051126, end: 20051127
  2. TBI [Suspect]
     Indication: ACUTE MYELOID LEUKAEMIA
     Dosage: 1200CGY
     Dates: start: 20051128, end: 20051130
  3. ACYLOVIR [Concomitant]
  4. THIAMIN [Concomitant]
  5. METOPROLOL [Concomitant]
  6. SYNTHROID [Concomitant]
  7. NIFEDIPINE [Concomitant]
  8. CYCLOSPORINE [Concomitant]
  9. SOLU-MEDROL [Concomitant]
  10. CARBOXY-ME CELLULOSE [Concomitant]
  11. MORPHINE [Concomitant]
  12. PETROLATUM OPTH OINT [Concomitant]
  13. MUPEROCIN [Concomitant]

REACTIONS (5)
  - ATRIAL FIBRILLATION [None]
  - BACTERIAL INFECTION [None]
  - BLINDNESS [None]
  - FUNGAL INFECTION [None]
  - POST PROCEDURAL COMPLICATION [None]
